FAERS Safety Report 5648828-4 (Version None)
Quarter: 2008Q1

REPORT INFORMATION
  Report Type: 
  Country: None (occurrence: None)
  Receive Date: 20080131
  Receipt Date: 20071203
  Transmission Date: 20080703
  Serious: No
  Sender: FDA-Public Use
  Company Number: US200712000640

PATIENT
  Age: 54 Year
  Sex: Female
  Weight: 68 kg

DRUGS (5)
  1. BYETTA [Suspect]
     Indication: TYPE 2 DIABETES MELLITUS
     Dosage: 5 UG, 2/D, SUBCUTANEOUS; 10 UG, 2/D, SUBCUTANEOUS
     Route: 058
     Dates: start: 20071101, end: 20071130
  2. BYETTA [Suspect]
     Indication: TYPE 2 DIABETES MELLITUS
     Dosage: 5 UG, 2/D, SUBCUTANEOUS; 10 UG, 2/D, SUBCUTANEOUS
     Route: 058
     Dates: start: 20071201
  3. PRILOSEC [Concomitant]
  4. ... [Concomitant]
  5. ... [Concomitant]

REACTIONS (4)
  - DIARRHOEA [None]
  - ERUCTATION [None]
  - FAECES DISCOLOURED [None]
  - INJECTION SITE URTICARIA [None]
